FAERS Safety Report 4466809-3 (Version None)
Quarter: 2004Q4

REPORT INFORMATION
  Report Type: 
  Country: None (occurrence: None)
  Receive Date: 20041001
  Receipt Date: 20041001
  Transmission Date: 20050328
  Serious: No
  Sender: FDA-Public Use
  Company Number: None

PATIENT
  Age: 50 Year
  Sex: Female
  Weight: 14.5151 kg

DRUGS (4)
  1. XANAX [Suspect]
     Indication: ANXIETY
     Dosage: XANAS 1 TABLE OTHER
     Route: 050
  2. XANAX [Suspect]
     Indication: INSOMNIA
     Dosage: XANAS 1 TABLE OTHER
     Route: 050
  3. XANAX [Suspect]
     Indication: STRESS SYMPTOMS
     Dosage: XANAS 1 TABLE OTHER
     Route: 050
  4. BENADRYL [Suspect]
     Dosage: BENADRYL AS NEEDED OTHER

REACTIONS (5)
  - CATARACT [None]
  - EYE PAIN [None]
  - KERATOCONJUNCTIVITIS SICCA [None]
  - PHOTOSENSITIVITY REACTION [None]
  - VISION BLURRED [None]
